FAERS Safety Report 6914017-6 (Version None)
Quarter: 2010Q3

REPORT INFORMATION
  Report Type: 
  Country: None (occurrence: None)
  Receive Date: 20100809
  Receipt Date: 20100727
  Transmission Date: 20110219
  Serious: Yes (Other)
  Sender: FDA-Public Use
  Company Number: PHHY2010BR50214

PATIENT
  Age: 61 Year
  Sex: Female

DRUGS (1)
  1. EXFORGE [Suspect]
     Dosage: 320/5 MG

REACTIONS (6)
  - BLOOD PRESSURE DECREASED [None]
  - CARDIAC DISORDER [None]
  - HYPERTENSION [None]
  - SYNCOPE [None]
  - TREATMENT NONCOMPLIANCE [None]
  - TREMOR [None]
